FAERS Safety Report 7164268-3 (Version None)
Quarter: 2010Q4

REPORT INFORMATION
  Report Type: 
  Country: None (occurrence: None)
  Receive Date: 20101215
  Receipt Date: 20101206
  Transmission Date: 20110411
  Serious: Yes (Hospitalization)
  Sender: FDA-Public Use
  Company Number: TR-WATSON-2010-15814

PATIENT
  Age: 30 Year
  Sex: Male

DRUGS (1)
  1. OXYTROL [Suspect]
     Indication: DRUG ABUSE
     Dosage: 150 MG, DAILY
     Route: 048

REACTIONS (7)
  - ANXIETY [None]
  - DELUSION OF REFERENCE [None]
  - DRUG ABUSE [None]
  - DRUG DEPENDENCE [None]
  - HALLUCINATION, AUDITORY [None]
  - PERSECUTORY DELUSION [None]
  - PSYCHOTIC DISORDER [None]
